FAERS Safety Report 20859115 (Version 1)
Quarter: 2022Q2

REPORT INFORMATION
  Report Type: Spontaneous
  Country: US (occurrence: US)
  Receive Date: 20220523
  Receipt Date: 20220523
  Transmission Date: 20220721
  Serious: No
  Sender: FDA-Public Use
  Company Number: US-drreddys-SPO/USA/22/0149783

PATIENT
  Age: 15 Year
  Sex: Female

DRUGS (1)
  1. ZENATANE [Suspect]
     Active Substance: ISOTRETINOIN
     Indication: Acne cystic
     Dosage: RMA ISSUE DATE: 17 DECEMBER 2021 05:07:56 PM, 01 FEBRUARY 2022 03:22:10 PM, 24 FEBRUARY 2022 01:22:2

REACTIONS (1)
  - Adverse drug reaction [Unknown]
